FAERS Safety Report 8503085-6 (Version None)
Quarter: 2012Q3

REPORT INFORMATION
  Report Type: 
  Country: None (occurrence: None)
  Receive Date: 20120711
  Receipt Date: 20120706
  Transmission Date: 20120928
  Serious: Yes (Other)
  Sender: FDA-Public Use
  Company Number: GB-BAYER-2012-068023

PATIENT
  Age: 37 Year
  Sex: Female
  Weight: 76 kg

DRUGS (4)
  1. VENTOLIN [Concomitant]
  2. MIRENA [Suspect]
     Dosage: 20 MCG/24HR, CONT
     Route: 015
  3. HUMALOG [Concomitant]
  4. DULOXETINE HYDROCHLORIDE [Concomitant]

REACTIONS (4)
  - PALPITATIONS [None]
  - DYSPNOEA [None]
  - MOOD SWINGS [None]
  - HEADACHE [None]
